FAERS Safety Report 11232712 (Version 1)
Quarter: 2015Q3

REPORT INFORMATION
  Report Type: Spontaneous
  Country: US (occurrence: US)
  Receive Date: 20150701
  Receipt Date: 20150701
  Transmission Date: 20151125
  Serious: No
  Sender: FDA-Public Use
  Company Number: US-BAYER-2015-362047

PATIENT
  Age: 67 Year
  Sex: Female

DRUGS (9)
  1. OMEGA 3 FISH OIL [Concomitant]
     Active Substance: FISH OIL\OMEGA-3 FATTY ACIDS
     Dosage: UNK
  2. VITAMIN D [Concomitant]
     Active Substance: CHOLECALCIFEROL
     Dosage: UNK
  3. CALCIUM CARBONATE [CALCIUM CARBONATE] [Concomitant]
     Dosage: UNK
  4. VITAMIN E [TOCOPHEROL] [Concomitant]
     Dosage: UNK
  5. ASPIRINE [Concomitant]
     Active Substance: ASPIRIN
     Dosage: UNK
  6. CENTRUM [MINERALS NOS,VITAMINS NOS] [Concomitant]
     Dosage: UNK
  7. CLIMARA [Suspect]
     Active Substance: ESTRADIOL
     Indication: POSTOPERATIVE CARE
     Dosage: 0.025MG/DAY
     Route: 062
     Dates: start: 201309, end: 20150614
  8. ALLEGRA-D 12 HOUR [Concomitant]
     Indication: HYPERSENSITIVITY
     Dosage: 180 MG ONCE A DAY
     Route: 048
  9. VITAMIN C [ASCORBIC ACID] [Concomitant]
     Dosage: UNK

REACTIONS (2)
  - Application site pain [Recovering/Resolving]
  - Application site erythema [Recovering/Resolving]

NARRATIVE: CASE EVENT DATE: 20150607
